FAERS Safety Report 21098825 (Version 1)
Quarter: 2022Q3

REPORT INFORMATION
  Report Type: Spontaneous
  Country: US (occurrence: US)
  Receive Date: 20220719
  Receipt Date: 20220719
  Transmission Date: 20221027
  Serious: No
  Sender: FDA-Public Use
  Company Number: US-BRISTOL-MYERS SQUIBB COMPANY-2022-071018

PATIENT
  Age: 48 Year
  Sex: Female
  Weight: 102.06 kg

DRUGS (4)
  1. REVLIMID [Suspect]
     Active Substance: LENALIDOMIDE
     Indication: Plasma cell myeloma
     Dosage: DOSE : 10MG;     FREQ : 28 DAY
     Route: 048
  2. PROZAC [Concomitant]
     Active Substance: FLUOXETINE HYDROCHLORIDE
     Indication: Product used for unknown indication
     Route: 065
  3. ACYCLOVIR [Concomitant]
     Active Substance: ACYCLOVIR
     Indication: Product used for unknown indication
     Dosage: TWICE PER DAY
     Route: 065
  4. ASPIRIN ULTRA [Concomitant]
     Indication: Product used for unknown indication
     Route: 065

REACTIONS (4)
  - Aphthous ulcer [Unknown]
  - Throat irritation [Unknown]
  - Oropharyngeal pain [Unknown]
  - Glossodynia [Unknown]

NARRATIVE: CASE EVENT DATE: 20220702
